FAERS Safety Report 6635103-4 (Version None)
Quarter: 2010Q1

REPORT INFORMATION
  Report Type: 
  Country: None (occurrence: None)
  Receive Date: 20100315
  Receipt Date: 20100303
  Transmission Date: 20100710
  Serious: Yes (Hospitalization)
  Sender: FDA-Public Use
  Company Number: PHHY2010JP12884

PATIENT
  Age: 29 Year
  Sex: Female

DRUGS (1)
  1. DIOVAN [Suspect]
     Dosage: 400 MG
     Route: 048

REACTIONS (4)
  - HYPOTENSION [None]
  - INTENTIONAL OVERDOSE [None]
  - SHOCK [None]
  - SUICIDE ATTEMPT [None]
